FAERS Safety Report 9341055 (Version 1)
Quarter: 2013Q2

REPORT INFORMATION
  Report Type: Spontaneous
  Country: FR (occurrence: FR)
  Receive Date: 20130610
  Receipt Date: 20130610
  Transmission Date: 20140414
  Serious: Yes (Other)
  Sender: FDA-Public Use
  Company Number: FR-ASTRAZENECA-2013SE40437

PATIENT
  Age: 19292 Day
  Sex: Female

DRUGS (5)
  1. XEROQUEL [Suspect]
     Indication: ABNORMAL BEHAVIOUR
     Route: 048
     Dates: start: 20130219, end: 20130308
  2. SERTRALINE [Suspect]
     Route: 048
     Dates: start: 20130416, end: 20130515
  3. SERTRALINE [Suspect]
     Route: 048
     Dates: start: 20130515
  4. ATARAX [Concomitant]
  5. TRANXENE [Concomitant]

REACTIONS (14)
  - Erythema [Recovered/Resolved]
  - Confusional state [Recovered/Resolved]
  - Tongue dry [Recovered/Resolved]
  - Thirst [Recovered/Resolved]
  - Myoclonus [Unknown]
  - Extrapyramidal disorder [Recovered/Resolved]
  - Oedema peripheral [Not Recovered/Not Resolved]
  - Tremor [Unknown]
  - Hypertonia [Unknown]
  - Dyspnoea [Unknown]
  - Dizziness [Unknown]
  - Hyperkinesia [Not Recovered/Not Resolved]
  - Dry mouth [Not Recovered/Not Resolved]
  - Off label use [Recovered/Resolved]
